FAERS Safety Report 4559238-5 (Version None)
Quarter: 2005Q1

REPORT INFORMATION
  Report Type: 
  Country: None (occurrence: None)
  Receive Date: 20050121
  Receipt Date: 20050121
  Transmission Date: 20050727
  Serious: Yes (Life-Threatening, Hospitalization)
  Sender: FDA-Public Use
  Company Number: None

PATIENT
  Age: 19 Year
  Sex: Female
  Weight: 88.2 kg

DRUGS (2)
  1. HEPARIN FLUSHES   300 UNITS/3 ML [Suspect]
     Indication: CENTRAL VENOUS CATHETERISATION
     Dosage: 300 UNITS   BID+PRN   INTRAVENOU
     Route: 042
     Dates: start: 20041011, end: 20041021
  2. ENOXAPARIN   30 MG   AVENTIS [Suspect]
     Indication: THROMBOSIS PROPHYLAXIS
     Dosage: 30 MG   BID   SUBCUTANEO
     Route: 058
     Dates: start: 20041018, end: 20041021

REACTIONS (12)
  - ANTIBODY TEST POSITIVE [None]
  - BRADYCARDIA [None]
  - BRAIN OEDEMA [None]
  - COAGULOPATHY [None]
  - DEEP VEIN THROMBOSIS [None]
  - DRUG EXPOSURE DURING PREGNANCY [None]
  - HAEMOGLOBIN DECREASED [None]
  - HEPARIN-INDUCED THROMBOCYTOPENIA TEST [None]
  - LABORATORY TEST ABNORMAL [None]
  - OXYGEN SATURATION DECREASED [None]
  - PLATELET COUNT DECREASED [None]
  - PUPIL FIXED [None]
